FAERS Safety Report 7161712-2 (Version None)
Quarter: 2010Q4

REPORT INFORMATION
  Report Type: 
  Country: None (occurrence: None)
  Receive Date: 20101215
  Receipt Date: 20100524
  Transmission Date: 20110411
  Serious: No
  Sender: FDA-Public Use
  Company Number: US-MYLANLABS-2010S1008073

PATIENT
  Age: 81 Year
  Sex: Female

DRUGS (6)
  1. LISINOPRIL [Suspect]
     Indication: BLOOD PRESSURE
  2. FUROSEMIDE [Suspect]
     Indication: BLOOD PRESSURE
  3. MINOXIDIL [Suspect]
     Indication: BLOOD PRESSURE
  4. CATAPRES-TTS-1 [Suspect]
     Indication: BLOOD PRESSURE
  5. DILTIAZEM [Suspect]
     Indication: BLOOD PRESSURE
  6. ACIPHEX [Concomitant]

REACTIONS (1)
  - BLOOD PRESSURE FLUCTUATION [None]
